FAERS Safety Report 16229969 (Version 1)
Quarter: 2019Q2

REPORT INFORMATION
  Report Type: Spontaneous
  Country: US (occurrence: US)
  Receive Date: 20190423
  Receipt Date: 20190423
  Transmission Date: 20190711
  Serious: No
  Sender: FDA-Public Use
  Company Number: US-PURDUE-USA-2019-0146557

PATIENT
  Sex: Male

DRUGS (2)
  1. OXYCODONE HYDROCHLORIDE. [Suspect]
     Active Substance: OXYCODONE HYDROCHLORIDE
     Indication: PAIN
     Dosage: (6 X 20 MG) 120 MG, DAILY
     Route: 048
     Dates: start: 2014, end: 20190306
  2. OXYCODONE HYDROCHLORIDE. [Suspect]
     Active Substance: OXYCODONE HYDROCHLORIDE
     Dosage: 20 MG, QID
     Route: 048
     Dates: start: 20190306

REACTIONS (2)
  - Abdominal discomfort [Not Recovered/Not Resolved]
  - Weight decreased [Unknown]
